FAERS Safety Report 20914532 (Version 1)
Quarter: 2022Q2

REPORT INFORMATION
  Report Type: Spontaneous
  Country: US (occurrence: US)
  Receive Date: 20220604
  Receipt Date: 20220604
  Transmission Date: 20220720
  Serious: No
  Sender: FDA-Public Use
  Company Number: US-SA-SAC20220524000906

PATIENT
  Sex: Female

DRUGS (13)
  1. THYROGEN [Suspect]
     Active Substance: THYROTROPIN ALFA
     Indication: Pituitary tumour benign
     Dosage: 0.9 MG, BID
     Route: 030
  2. MECLIZINE HYDROCHLORIDE [Concomitant]
     Active Substance: MECLIZINE HYDROCHLORIDE
     Dosage: 25 MG
  3. VALIUM [Concomitant]
     Active Substance: DIAZEPAM
  4. DIAZEPAM [Concomitant]
     Active Substance: DIAZEPAM
  5. SPIRONOLACTONE [Concomitant]
     Active Substance: SPIRONOLACTONE
  6. OMEPRAZOLE [Concomitant]
     Active Substance: OMEPRAZOLE
  7. LOSARTAN POTASSIUM [Concomitant]
     Active Substance: LOSARTAN POTASSIUM
  8. LEVOTHYROXINE SODIUM [Concomitant]
     Active Substance: LEVOTHYROXINE SODIUM
  9. AMLODIPINE BESYLATE [Concomitant]
     Active Substance: AMLODIPINE BESYLATE
  10. STERILE WATER [Concomitant]
     Active Substance: WATER
  11. SOMAVERT [Concomitant]
     Active Substance: PEGVISOMANT
  12. PANTOPRAZOLE SODIUM [Concomitant]
     Active Substance: PANTOPRAZOLE SODIUM
     Dosage: 40 MG
  13. PROBIOTIC ACIDOPHILUS [LACTOBACILLUS ACIDOPHILUS] [Concomitant]

REACTIONS (1)
  - Vertigo [Unknown]
